FAERS Safety Report 17791603 (Version 1)
Quarter: 2020Q2

REPORT INFORMATION
  Report Type: Spontaneous
  Country: CN (occurrence: CN)
  Receive Date: 20200515
  Receipt Date: 20200515
  Transmission Date: 20200714
  Serious: Yes (Other)
  Sender: FDA-Public Use
  Company Number: CN-ROCHE-2598699

PATIENT
  Sex: Male
  Weight: 75 kg

DRUGS (1)
  1. XELODA [Suspect]
     Active Substance: CAPECITABINE
     Indication: RECTAL CANCER RECURRENT
     Route: 048
     Dates: start: 20200320

REACTIONS (4)
  - Peripheral paralysis [Unknown]
  - Nail bed disorder [Not Recovered/Not Resolved]
  - Palmar-plantar erythrodysaesthesia syndrome [Not Recovered/Not Resolved]
  - Pigmentation disorder [Not Recovered/Not Resolved]
